FAERS Safety Report 7503076-8 (Version None)
Quarter: 2011Q2

REPORT INFORMATION
  Report Type: 
  Country: None (occurrence: None)
  Receive Date: 20110525
  Receipt Date: 20101012
  Transmission Date: 20111010
  Serious: No
  Sender: FDA-Public Use
  Company Number: US-NOVEN-ALL1-2010-05305

PATIENT
  Sex: Male
  Weight: 45.351 kg

DRUGS (3)
  1. CLARITIN                           /00413701/ [Concomitant]
     Dosage: UNK, AS REQ'D
     Route: 048
  2. DAYTRANA [Suspect]
     Dosage: 10 MG, OTHER(10 MG PATCH MONDAY THROUGH THURSDAY, SCHOOL DAYS ONLY)
     Route: 062
     Dates: start: 20090101
  3. ZYRTEC [Concomitant]
     Dosage: UNK, AS REQ'D
     Route: 048

REACTIONS (6)
  - NAUSEA [None]
  - APPLICATION SITE PRURITUS [None]
  - APPLICATION SITE RASH [None]
  - APPLICATION SITE INFLAMMATION [None]
  - OFF LABEL USE [None]
  - ABDOMINAL PAIN [None]
